FAERS Safety Report 14763707 (Version 4)
Quarter: 2018Q2

REPORT INFORMATION
  Report Type: Spontaneous
  Country: JP (occurrence: JP)
  Receive Date: 20180416
  Receipt Date: 20180628
  Transmission Date: 20180711
  Serious: Yes (Hospitalization, Other)
  Sender: FDA-Public Use
  Company Number: JP-009507513-1710JPN002624J

PATIENT
  Age: 65 Year
  Sex: Male
  Weight: 53 kg

DRUGS (7)
  1. KEYTRUDA [Suspect]
     Active Substance: PEMBROLIZUMAB
     Indication: NON-SMALL CELL LUNG CANCER
     Dosage: 200 MG, Q3W
     Route: 041
     Dates: start: 20170316, end: 20170522
  2. PREDONINE [Suspect]
     Active Substance: PREDNISOLONE
     Indication: ARTHRITIS
     Dosage: 25 MG, QD
     Route: 048
     Dates: start: 20180207, end: 20180306
  3. PREDONINE [Suspect]
     Active Substance: PREDNISOLONE
     Dosage: 15 MG, QD
     Route: 048
     Dates: start: 20180307, end: 20180325
  4. PREDONINE [Suspect]
     Active Substance: PREDNISOLONE
     Dosage: 7.5 MG, QD
     Route: 048
     Dates: start: 20180326
  5. KEYTRUDA [Suspect]
     Active Substance: PEMBROLIZUMAB
     Dosage: 200 MG, Q3W
     Route: 041
     Dates: start: 20170619, end: 20170619
  6. KEYTRUDA [Suspect]
     Active Substance: PEMBROLIZUMAB
     Dosage: 200 MG, Q3W
     Route: 041
     Dates: start: 20170911, end: 20171220
  7. KEYTRUDA [Suspect]
     Active Substance: PEMBROLIZUMAB
     Dosage: 200 MG, Q3W
     Route: 041
     Dates: start: 20170807, end: 20170807

REACTIONS (7)
  - Diabetes mellitus [Recovering/Resolving]
  - Paronychia [Recovering/Resolving]
  - Tendon injury [Recovering/Resolving]
  - Gamma-glutamyltransferase increased [Recovering/Resolving]
  - Pharyngitis [Recovered/Resolved]
  - Blood alkaline phosphatase increased [Recovering/Resolving]
  - Arthritis [Recovered/Resolved]

NARRATIVE: CASE EVENT DATE: 20170612
